FAERS Safety Report 8829297 (Version 1)
Quarter: 2012Q4

REPORT INFORMATION
  Report Type: 
  Country: DE (occurrence: JP)
  Receive Date: 20121008
  Receipt Date: 20121008
  Transmission Date: 20130627
  Serious: Yes (Death)
  Sender: FDA-Public Use
  Company Number: JP-FRI-1000039239

PATIENT
  Age: 87 Year
  Sex: Female

DRUGS (3)
  1. MEMANTINE [Suspect]
     Indication: DEMENTIA ALZHEIMER^S TYPE
     Dosage: 5 mg
     Route: 048
     Dates: start: 20120207, end: 20120213
  2. MEMANTINE [Suspect]
     Indication: DEMENTIA ALZHEIMER^S TYPE
     Dosage: 10 mg
     Route: 048
     Dates: start: 20120214, end: 20120221
  3. SODIUM VALPROATE [Concomitant]

REACTIONS (2)
  - Marasmus [Fatal]
  - Thrombocytopenia [Unknown]
